FAERS Safety Report 14284290 (Version 5)
Quarter: 2018Q1

REPORT INFORMATION
  Report Type: Spontaneous
  Country: US (occurrence: US)
  Receive Date: 20171214
  Receipt Date: 20180216
  Transmission Date: 20180509
  Serious: Yes (Death, Hospitalization, Other)
  Sender: FDA-Public Use
  Company Number: US-PFIZER INC-2017527880

PATIENT
  Age: 66 Year
  Sex: Female
  Weight: 78 kg

DRUGS (2)
  1. VANCOMYCIN HCL [Suspect]
     Active Substance: VANCOMYCIN HYDROCHLORIDE
     Indication: INCISIONAL DRAINAGE
     Dosage: 500 MG, UNK
     Route: 042
     Dates: start: 20171127, end: 20171127
  2. VANCOMYCIN HCL [Suspect]
     Active Substance: VANCOMYCIN HYDROCHLORIDE
     Indication: INCISIONAL DRAINAGE
     Dosage: 1 G, UNK
     Route: 042
     Dates: start: 20171127, end: 20171127

REACTIONS (7)
  - Foaming at mouth [Unknown]
  - Cardiac arrest [Fatal]
  - Malaise [Unknown]
  - Blood pressure systolic decreased [Unknown]
  - Pain [Unknown]
  - Respiratory arrest [Unknown]
  - Vomiting [Unknown]

NARRATIVE: CASE EVENT DATE: 20171127
